FAERS Safety Report 23501351 (Version 2)
Quarter: 2024Q2

REPORT INFORMATION
  Report Type: Report from Study
  Country: US (occurrence: US)
  Receive Date: 20240208
  Receipt Date: 20240415
  Transmission Date: 20240716
  Serious: Yes (Other)
  Sender: FDA-Public Use
  Company Number: US-002147023-NVSC2024US023853

PATIENT
  Sex: Female

DRUGS (1)
  1. AFINITOR [Suspect]
     Active Substance: EVEROLIMUS
     Indication: Product used for unknown indication
     Dosage: UNK
     Route: 065

REACTIONS (7)
  - Neoplasm progression [Unknown]
  - Sleep disorder [Unknown]
  - Incorrect dose administered [Unknown]
  - Rash [Unknown]
  - Urticaria [Unknown]
  - Pruritus [Unknown]
  - Haemorrhage [Unknown]
